FAERS Safety Report 21996452 (Version 1)
Quarter: 2023Q1

REPORT INFORMATION
  Report Type: Spontaneous
  Country: US (occurrence: None)
  Receive Date: 20230215
  Receipt Date: 20230215
  Transmission Date: 20230417
  Serious: Yes (Other)
  Sender: FDA-Public Use
  Company Number: 2023A033743

PATIENT
  Age: 57 Year
  Sex: Female
  Weight: 73.5 kg

DRUGS (12)
  1. SEROQUEL [Suspect]
     Active Substance: QUETIAPINE FUMARATE
     Indication: Product used for unknown indication
     Dosage: UNKNOWN
     Route: 048
     Dates: start: 20230126
  2. KORLYM [Suspect]
     Active Substance: MIFEPRISTONE
     Indication: Cushing^s syndrome
     Route: 048
     Dates: start: 202204, end: 2022
  3. KORLYM [Suspect]
     Active Substance: MIFEPRISTONE
     Indication: Cushing^s syndrome
     Route: 048
     Dates: start: 202205
  4. KORLYM [Suspect]
     Active Substance: MIFEPRISTONE
     Indication: Cushing^s syndrome
     Route: 048
     Dates: start: 2022, end: 20220708
  5. KORLYM [Suspect]
     Active Substance: MIFEPRISTONE
     Indication: Cushing^s syndrome
     Route: 048
     Dates: start: 20220824, end: 2022
  6. KORLYM [Suspect]
     Active Substance: MIFEPRISTONE
     Indication: Cushing^s syndrome
     Route: 048
     Dates: start: 2022
  7. KORLYM [Suspect]
     Active Substance: MIFEPRISTONE
     Indication: Cushing^s syndrome
     Route: 048
  8. BIOTIN [Concomitant]
     Active Substance: BIOTIN
  9. OMEGA-3 + -6 COMPLEX [Concomitant]
  10. SOLU-MEDROL [Concomitant]
     Active Substance: METHYLPREDNISOLONE SODIUM SUCCINATE
  11. TRIHEXYPHENIDYL [Concomitant]
     Active Substance: TRIHEXYPHENIDYL
  12. ADDERALL [Concomitant]
     Active Substance: AMPHETAMINE ASPARTATE\AMPHETAMINE SULFATE\DEXTROAMPHETAMINE SACCHARATE\DEXTROAMPHETAMINE SULFATE

REACTIONS (31)
  - Neuropathy peripheral [Unknown]
  - Vertebral column mass [Not Recovered/Not Resolved]
  - Loss of consciousness [Unknown]
  - Fall [Unknown]
  - Mobility decreased [Unknown]
  - Hepatic enzyme increased [Recovered/Resolved]
  - Dry skin [Unknown]
  - Skin haemorrhage [Unknown]
  - Eye swelling [Unknown]
  - Cough [Recovered/Resolved]
  - Urticaria [Recovered/Resolved]
  - Genital burning sensation [Unknown]
  - Hiatus hernia [Unknown]
  - Skin discolouration [Unknown]
  - Skin texture abnormal [Unknown]
  - Hair growth abnormal [Unknown]
  - Skin striae [Unknown]
  - Renal pain [Not Recovered/Not Resolved]
  - Hypoaesthesia [Not Recovered/Not Resolved]
  - Motion sickness [Not Recovered/Not Resolved]
  - Rash pruritic [Recovered/Resolved]
  - Abdominal discomfort [Not Recovered/Not Resolved]
  - Dry mouth [Unknown]
  - Fatigue [Unknown]
  - Oedema peripheral [Not Recovered/Not Resolved]
  - Pruritus [Not Recovered/Not Resolved]
  - Fluid retention [Unknown]
  - Swelling [Unknown]
  - Dizziness [Not Recovered/Not Resolved]
  - Nausea [Not Recovered/Not Resolved]
  - Product dose omission issue [Unknown]
